FAERS Safety Report 22390338 (Version 1)
Quarter: 2023Q2

REPORT INFORMATION
  Report Type: Spontaneous
  Country: US (occurrence: US)
  Receive Date: 20230531
  Receipt Date: 20230531
  Transmission Date: 20230721
  Serious: No
  Sender: FDA-Public Use
  Company Number: US-ABBVIE-5183681

PATIENT
  Sex: Female

DRUGS (1)
  1. SYNTHROID [Suspect]
     Active Substance: LEVOTHYROXINE SODIUM
     Indication: Product used for unknown indication
     Dosage: 75 MICROGRAM
     Route: 048

REACTIONS (5)
  - Tongue disorder [Unknown]
  - Drug hypersensitivity [Unknown]
  - Allergy to chemicals [Unknown]
  - Drug hypersensitivity [Unknown]
  - Adverse drug reaction [Unknown]
